FAERS Safety Report 18281351 (Version 1)
Quarter: 2020Q3

REPORT INFORMATION
  Report Type: Spontaneous
  Country: DE (occurrence: DE)
  Receive Date: 20200918
  Receipt Date: 20200918
  Transmission Date: 20201103
  Serious: Yes (Other)
  Sender: FDA-Public Use
  Company Number: DE-TEVA-2020-DE-1829197

PATIENT
  Sex: Female

DRUGS (1)
  1. RASAGILIN [Suspect]
     Active Substance: RASAGILINE MESYLATE
     Dosage: LONG?TERM THERAPY
     Route: 065

REACTIONS (1)
  - Hepatocellular carcinoma [Not Recovered/Not Resolved]
